FAERS Safety Report 9252256 (Version 1)
Quarter: 2013Q1

REPORT INFORMATION
  Report Type: Spontaneous
  Country: US (occurrence: None)
  Receive Date: 20130305
  Receipt Date: 20130305
  Transmission Date: 20140127
  Serious: Yes (Other)
  Sender: FDA-Public Use
  Company Number: 163-21880-12081911 (0)

PATIENT
  Age: 62 Year
  Sex: Male
  Weight: 69.85 kg

DRUGS (2)
  1. REVLIMID [Suspect]
     Indication: PLASMA CELL MYELOMA
     Route: 048
     Dates: start: 20120607
  2. DEXAMETHASONE(DEXAMETHASONE) (UNKNOWN) [Concomitant]

REACTIONS (3)
  - Insomnia [None]
  - Dysgeusia [None]
  - Muscle spasms [None]
